FAERS Safety Report 24039668 (Version 1)
Quarter: 2024Q3

REPORT INFORMATION
  Report Type: Spontaneous
  Country: US (occurrence: US)
  Receive Date: 20240702
  Receipt Date: 20240702
  Transmission Date: 20241017
  Serious: Yes (Other)
  Sender: AMGEN
  Company Number: US-AMGEN-USASP2024125344

PATIENT

DRUGS (13)
  1. INFLIXIMAB [Suspect]
     Active Substance: INFLIXIMAB
     Indication: Intestine transplant rejection
     Dosage: UNK
     Route: 065
  2. PREDNISONE [Suspect]
     Active Substance: PREDNISONE
     Indication: Intestinal transplant
     Dosage: 10 MILLIGRAM (BY POST-OPERATIVE DAY 5 AND MAINTAINED LIFELONG)
     Route: 065
  3. METHYLPREDNISOLONE [Concomitant]
     Active Substance: METHYLPREDNISOLONE
     Indication: Intestinal transplant
     Dosage: 10 MILLIGRAM/KILOGRAM [(MAXIMUM DOSE: 500 MG) USING ACTUAL BODY WEIGHT INTRAOPERATIVELY]
     Route: 065
  4. METHYLPREDNISOLONE [Concomitant]
     Active Substance: METHYLPREDNISOLONE
     Indication: Intestine transplant rejection
  5. LAPINE T-LYMPHOCYTE IMMUNE GLOBULIN [Concomitant]
     Active Substance: LAPINE T-LYMPHOCYTE IMMUNE GLOBULIN
     Indication: Intestinal transplant
     Dosage: 1.5 MILLIGRAM/KILOGRAM (USING IDEAL BODY WEIGHT ON POST-OPERATIVE DAYS 0 THROUGH 4)
  6. TACROLIMUS [Concomitant]
     Active Substance: TACROLIMUS
     Indication: Intestinal transplant
     Dosage: 0.025 MILLIGRAM/KILOGRAM, Q12H (USING IDEAL BODY WEIGHT EVERY 12 H STARTING ON POST-OPERATIVE DAY 0)
     Route: 060
  7. BASILIXIMAB [Concomitant]
     Active Substance: BASILIXIMAB
     Indication: Intestinal transplant
     Dosage: 20 MILLIGRAM, QMO (INITIATED WITHIN 7 DAYS POST-TRANSPLANT AND CONTINUED MONTHLY FOR 6 MONTHS)
  8. BASILIXIMAB [Concomitant]
     Active Substance: BASILIXIMAB
     Dosage: 20 MILLIGRAM, Q2MO (UP TO 1 YEAR)
  9. MYCOPHENOLATE MOFETIL [Concomitant]
     Active Substance: MYCOPHENOLATE MOFETIL
     Indication: Intestinal transplant
     Dosage: 2000 MILLIGRAM (ON POST-OPERATIVE DAY 1 AND MAINTAINED FOR UP TO 1 MONTH)
  10. PIPERACILLIN AND TAZOBACTAM [Concomitant]
     Active Substance: PIPERACILLIN SODIUM\TAZOBACTAM SODIUM
     Indication: Prophylaxis
     Dosage: 4.5 MILLIGRAM, Q8H
  11. PIPERACILLIN AND TAZOBACTAM [Concomitant]
     Active Substance: PIPERACILLIN SODIUM\TAZOBACTAM SODIUM
     Dosage: 3.375 MILLIGRAM, Q8H (FROM POSTOPERATIVE DAY 0 THROUGH 2)
  12. FLUCONAZOLE [Concomitant]
     Active Substance: FLUCONAZOLE
     Indication: Prophylaxis
     Dosage: 400 MILLIGRAM, QD (FROM POST-OPERATIVE DAY 0 THROUGH 7)
  13. SULFAMETHOXAZOLE\TRIMETHOPRIM [Concomitant]
     Active Substance: SULFAMETHOXAZOLE\TRIMETHOPRIM
     Indication: Antifungal prophylaxis
     Dosage: 800/160 MG TWICE WEEKLY

REACTIONS (6)
  - Intestine transplant rejection [Recovered/Resolved]
  - Diabetes mellitus [Unknown]
  - Device related bacteraemia [Unknown]
  - Device related fungaemia [Unknown]
  - Drug effective for unapproved indication [Unknown]
  - Off label use [Unknown]
